FAERS Safety Report 13232742 (Version 1)
Quarter: 2017Q1

REPORT INFORMATION
  Report Type: Report from Study
  Country: AU (occurrence: AU)
  Receive Date: 20170214
  Receipt Date: 20170214
  Transmission Date: 20170428
  Serious: Yes (Death)
  Sender: FDA-Public Use
  Company Number: AU-BAUSCH-BL-2017-003634

PATIENT
  Age: 96 Year
  Sex: Female
  Weight: 47.03 kg

DRUGS (2)
  1. VISUDYNE [Suspect]
     Active Substance: VERTEPORFIN
     Indication: MACULAR DEGENERATION
     Route: 042
  2. RANIBIZUMAB OR PLACEBO [Suspect]
     Active Substance: RANIBIZUMAB
     Indication: MACULAR DEGENERATION
     Route: 050

REACTIONS (3)
  - Diverticulum [Fatal]
  - Cardiac failure congestive [Fatal]
  - Intestinal perforation [Fatal]

NARRATIVE: CASE EVENT DATE: 20160908
